FAERS Safety Report 16890946 (Version 1)
Quarter: 2019Q4

REPORT INFORMATION
  Report Type: Report from Study
  Country: US (occurrence: US)
  Receive Date: 20191007
  Receipt Date: 20191007
  Transmission Date: 20200122
  Serious: No
  Sender: FDA-Public Use
  Company Number: US-EMD SERONO-9108120

PATIENT
  Age: 51 Year
  Sex: Female

DRUGS (1)
  1. MAVENCLAD [Suspect]
     Active Substance: CLADRIBINE
     Indication: MULTIPLE SCLEROSIS
     Dosage: PATIENT WAS SCHEDULED TO TAKE CUMULATIVE DOSE OF 140 MG
     Route: 048
     Dates: start: 20190719

REACTIONS (3)
  - Nausea [Unknown]
  - Vomiting [Unknown]
  - Decreased appetite [Unknown]

NARRATIVE: CASE EVENT DATE: 201907
